FAERS Safety Report 9384503 (Version 1)
Quarter: 2013Q3

REPORT INFORMATION
  Report Type: Report from Study
  Country: BR (occurrence: BR)
  Receive Date: 20130705
  Receipt Date: 20130705
  Transmission Date: 20140515
  Serious: Yes (Hospitalization, Other)
  Sender: FDA-Public Use
  Company Number: BR-ROCHE-1036661

PATIENT
  Sex: Male
  Weight: 66.9 kg

DRUGS (4)
  1. PEGASYS [Suspect]
     Indication: HEPATITIS C
     Route: 042
     Dates: start: 20111031
  2. RIBAVIRIN [Suspect]
     Indication: HEPATITIS
     Route: 048
  3. SONATA [Suspect]
     Indication: DEPRESSION
     Route: 065
  4. GLIBENCLAMIDE [Concomitant]
     Route: 065

REACTIONS (14)
  - Inguinal hernia [Not Recovered/Not Resolved]
  - Depression [Not Recovered/Not Resolved]
  - Pain [Recovered/Resolved]
  - Local swelling [Recovered/Resolved]
  - Dizziness [Recovered/Resolved]
  - Cough [Recovered/Resolved]
  - Thrombocytopenia [Recovered/Resolved]
  - Anaemia [Recovered/Resolved]
  - Nausea [Not Recovered/Not Resolved]
  - Decreased appetite [Recovered/Resolved]
  - Formication [Recovering/Resolving]
  - Discomfort [Recovered/Resolved]
  - Fungal infection [Unknown]
  - Onychomadesis [Recovered/Resolved]
